FAERS Safety Report 12039962 (Version 1)
Quarter: 2016Q1

REPORT INFORMATION
  Report Type: Spontaneous
  Country: US (occurrence: US)
  Receive Date: 20160208
  Receipt Date: 20160208
  Transmission Date: 20160526
  Serious: No
  Sender: FDA-Public Use
  Company Number: US-AMAG PHARMACEUTICALS, INC.-AMAG201500466

PATIENT
  Age: 34 Year
  Sex: Female
  Weight: 54.42 kg

DRUGS (3)
  1. PRENATAL VITAMINS [Concomitant]
     Active Substance: VITAMINS
     Indication: PREGNANCY
     Dosage: 1 TABS, QD
     Route: 048
  2. MAKENA [Suspect]
     Active Substance: HYDROXYPROGESTERONE CAPROATE
     Indication: PREMATURE DELIVERY
     Dosage: 250 MG, WEEKLY
     Route: 030
     Dates: start: 201505
  3. ACTIGALL [Concomitant]
     Active Substance: URSODIOL
     Dosage: 500 MG, BID
     Route: 048

REACTIONS (3)
  - Cholestasis of pregnancy [Unknown]
  - Liver function test increased [Unknown]
  - Total bile acids increased [Unknown]

NARRATIVE: CASE EVENT DATE: 20150407
